FAERS Safety Report 11407352 (Version 1)
Quarter: 2015Q3

REPORT INFORMATION
  Report Type: Spontaneous
  Country: JP (occurrence: JP)
  Receive Date: 20150821
  Receipt Date: 20150821
  Transmission Date: 20151125
  Serious: Yes (Other)
  Sender: FDA-Public Use
  Company Number: PHHY2015JP100518

PATIENT
  Age: 58 Year
  Sex: Female

DRUGS (1)
  1. METHOTREXATE [Suspect]
     Active Substance: METHOTREXATE
     Indication: RHEUMATOID ARTHRITIS
     Dosage: 8 MG, QW
     Route: 065

REACTIONS (4)
  - Epstein-Barr virus infection [Unknown]
  - Richter^s syndrome [Unknown]
  - Lymphoproliferative disorder [Recovered/Resolved]
  - B-cell small lymphocytic lymphoma [Unknown]
